FAERS Safety Report 5000582-5 (Version None)
Quarter: 2006Q2

REPORT INFORMATION
  Report Type: 
  Country: None (occurrence: None)
  Receive Date: 20060512
  Receipt Date: 20060504
  Transmission Date: 20061013
  Serious: Yes (Other)
  Sender: FDA-Public Use
  Company Number: GB-JNJFOC-20060405090

PATIENT
  Sex: Male
  Weight: 41 kg

DRUGS (3)
  1. CONCERTA [Suspect]
     Dosage: TAKEN IN THE MORNING
     Route: 048
  2. CONCERTA [Suspect]
     Route: 048
  3. CONCERTA [Suspect]
     Route: 048

REACTIONS (1)
  - HIGH RISK SEXUAL BEHAVIOUR [None]
